FAERS Safety Report 7048915-2 (Version None)
Quarter: 2010Q4

REPORT INFORMATION
  Report Type: 
  Country: None (occurrence: None)
  Receive Date: 20101008
  Receipt Date: 20100927
  Transmission Date: 20110411
  Serious: Yes (Death, Life-Threatening, Hospitalization, Other)
  Sender: FDA-Public Use
  Company Number: 2008-04286

PATIENT
  Age: 16 Year
  Sex: Female
  Weight: 70.8 kg

DRUGS (7)
  1. VELCADE [Suspect]
     Indication: ACUTE LYMPHOCYTIC LEUKAEMIA
     Dosage: 1.3 MM/M2, INTRAVENOUS
     Route: 042
     Dates: start: 20071023, end: 20071023
  2. VINCRISTINE [Suspect]
     Indication: ACUTE LYMPHOCYTIC LEUKAEMIA
     Dosage: 2 MG, INTRAVENOUS
     Route: 042
     Dates: start: 20071023, end: 20071023
  3. METHOTREXATE [Suspect]
     Indication: ACUTE LYMPHOCYTIC LEUKAEMIA
     Dates: start: 20050101, end: 20070101
  4. DECADRON [Suspect]
     Indication: ACUTE LYMPHOCYTIC LEUKAEMIA
     Dosage: 9 MG, INTRAVENOUS
     Route: 042
     Dates: start: 20071023, end: 20071023
  5. PEGASPARGASE (PEGASPARGASE) [Suspect]
     Indication: ACUTE LYMPHOCYTIC LEUKAEMIA
     Dosage: INTRAMUSCULAR
     Route: 030
     Dates: start: 20071025
  6. ARA-C (CYTARABINE) [Suspect]
     Indication: ACUTE LYMPHOCYTIC LEUKAEMIA
     Dosage: 70 MG, INTRATHECAL
     Route: 037
     Dates: start: 20050101, end: 20071023
  7. DOXORUBICIN (DOXORUBICIN) [Suspect]
     Indication: ACUTE LYMPHOCYTIC LEUKAEMIA
     Dosage: 107 MG, INTRAVENOUS
     Route: 042
     Dates: start: 20071023, end: 20071023

REACTIONS (22)
  - ANAPHYLACTOID REACTION [None]
  - AORTIC THROMBOSIS [None]
  - BACTERAEMIA [None]
  - BONE PAIN [None]
  - DYSPNOEA [None]
  - HEPATIC FAILURE [None]
  - HEPATIC INFARCTION [None]
  - HYPERAMMONAEMIA [None]
  - HYPERPYREXIA [None]
  - HYPOKALAEMIA [None]
  - HYPOPHOSPHATAEMIA [None]
  - HYPOTENSION [None]
  - INFUSION RELATED REACTION [None]
  - LOSS OF CONSCIOUSNESS [None]
  - LUNG INFILTRATION [None]
  - MUCORMYCOSIS [None]
  - NEUTROPENIA [None]
  - PLATELET COUNT DECREASED [None]
  - PLEURAL EFFUSION [None]
  - RHABDOMYOLYSIS [None]
  - SHOCK [None]
  - SPLENIC INFARCTION [None]
